FAERS Safety Report 26208556 (Version 1)
Quarter: 2025Q4

REPORT INFORMATION
  Report Type: Spontaneous
  Country: GB (occurrence: GB)
  Receive Date: 20251229
  Receipt Date: 20251229
  Transmission Date: 20260118
  Serious: Yes (Other)
  Sender: SANDOZ
  Company Number: None

PATIENT
  Age: 88 Year
  Sex: Female
  Weight: 41 kg

DRUGS (9)
  1. ROSUVASTATIN [Suspect]
     Active Substance: ROSUVASTATIN
     Indication: Product used for unknown indication
     Dosage: TAKE ONE ON MONDAY, WEDNESDAY, FRIDAY - FOR CHO...
  2. ALLEVYN GENTLE BORDER [Concomitant]
     Indication: Ill-defined disorder
     Dosage: (FOAM - BORDERED) -  USE AS DIRECTED - MAX QUAN...
  3. Octenilin [Concomitant]
     Indication: Ill-defined disorder
     Dosage: (ANTIMICROBIAL IRRIGATION) - USE AS DIRECTED
  4. NITROGLYCERIN [Concomitant]
     Active Substance: NITROGLYCERIN
     Indication: Product used for unknown indication
     Dosage: USE ONE SPRAY UNDER THE TONGUE AS DIRECTED WHEN...
  5. LISINOPRIL [Concomitant]
     Active Substance: LISINOPRIL
     Indication: Product used for unknown indication
     Dosage: UNK UNK, QD
     Dates: start: 20230602
  6. INCLISIRAN [Concomitant]
     Active Substance: INCLISIRAN
     Indication: Product used for unknown indication
     Dosage: ADMINISTER ONE DOSE EVERY 6 MONTHS FOR LIPIDS
  7. FAMOTIDINE [Concomitant]
     Active Substance: FAMOTIDINE
     Indication: Product used for unknown indication
     Dosage: UNK UNK, QD
     Dates: start: 20240705
  8. FUROSEMIDE [Concomitant]
     Active Substance: FUROSEMIDE
     Indication: Product used for unknown indication
     Dosage: TAKE 40MG DAILY, AND 20MG DAILY ALTERNATE DAYS.
  9. EZETIMIBE [Concomitant]
     Active Substance: EZETIMIBE
     Indication: Product used for unknown indication
     Dosage: UNK UNK, QD
     Dates: start: 20251223

REACTIONS (2)
  - Malaise [Unknown]
  - Abdominal discomfort [Recovered/Resolved]
